FAERS Safety Report 8531361 (Version 3)
Quarter: 2012Q4

REPORT INFORMATION
  Report Type: 
  Country: US (occurrence: US)
  Receive Date: 20120426
  Receipt Date: 20120918
  Transmission Date: 20130627
  Serious: Yes (Hospitalization)
  Sender: FDA-Public Use
  Company Number: US-BAYER-2012-040008

PATIENT
  Age: 48 Year
  Sex: Female
  Weight: 104.31 kg

DRUGS (7)
  1. YAZ [Suspect]
     Indication: MENORRHAGIA
     Dosage: UNK
     Dates: start: 20100206, end: 20100429
  2. LORAZEPAM [Concomitant]
     Dosage: 1 mg, UNK
  3. BENICAR [Concomitant]
     Indication: HYPERTENSION
     Dosage: 20 mg, daily
     Dates: start: 2008
  4. LEXAPRO [Concomitant]
     Indication: DEPRESSION
     Dosage: 20 mg/daily
     Dates: start: 2008
  5. VITAMIN D [Concomitant]
     Dosage: 50,000 units/weekly
  6. FERROUS SULFATE [Concomitant]
     Dosage: daily
  7. FISH OIL [Concomitant]
     Dosage: daily

REACTIONS (4)
  - Deep vein thrombosis [None]
  - Pulmonary embolism [None]
  - Injury [None]
  - Pain [None]
